FAERS Safety Report 20091213 (Version 3)
Quarter: 2021Q4

REPORT INFORMATION
  Report Type: Report from Study
  Country: ES (occurrence: ES)
  Receive Date: 20211119
  Receipt Date: 20211201
  Transmission Date: 20220303
  Serious: Yes (Hospitalization, Other)
  Sender: FDA-Public Use
  Company Number: ES-VELOXIS PHARMACEUTICALS-2019VELES-000671

PATIENT
  Age: 79 Year
  Sex: Male
  Weight: 68.6 kg

DRUGS (57)
  1. MYCOPHENOLATE MOFETIL [Suspect]
     Active Substance: MYCOPHENOLATE MOFETIL
     Indication: Immunosuppression
     Dosage: 720 MG, QD
     Route: 065
     Dates: start: 20191115, end: 20200305
  2. MYCOPHENOLATE MOFETIL [Suspect]
     Active Substance: MYCOPHENOLATE MOFETIL
     Indication: Prophylaxis against transplant rejection
     Dosage: 2 MILLIGRAM
     Dates: start: 20200305, end: 20200312
  3. MYCOPHENOLATE MOFETIL [Suspect]
     Active Substance: MYCOPHENOLATE MOFETIL
     Dosage: 720 MILLIGRAM, QD
     Route: 065
     Dates: start: 20190901, end: 20191028
  4. MYCOPHENOLATE MOFETIL [Suspect]
     Active Substance: MYCOPHENOLATE MOFETIL
     Dosage: 540 MILLIGRAM, QD
     Route: 065
     Dates: start: 20191028, end: 20191111
  5. MYCOPHENOLATE MOFETIL [Suspect]
     Active Substance: MYCOPHENOLATE MOFETIL
     Dosage: 1440 MILLIGRAM, QD
     Dates: start: 20190823, end: 20190831
  6. MYCOPHENOLATE MOFETIL [Suspect]
     Active Substance: MYCOPHENOLATE MOFETIL
     Dosage: 360 MILLIGRAM, QD
     Dates: start: 20191111, end: 20191115
  7. EVEROLIMUS [Suspect]
     Active Substance: EVEROLIMUS
     Indication: Immunosuppression
     Dosage: 3 MILLIGRAM, QD
     Route: 065
     Dates: start: 20200402, end: 20200405
  8. EVEROLIMUS [Suspect]
     Active Substance: EVEROLIMUS
     Dosage: 2 MILLIGRAM, QD
     Dates: start: 20200414, end: 20200420
  9. EVEROLIMUS [Suspect]
     Active Substance: EVEROLIMUS
     Dosage: 4 MILLIGRAM, QD
     Dates: start: 20200323, end: 20200402
  10. EVEROLIMUS [Suspect]
     Active Substance: EVEROLIMUS
     Dosage: 2.5 MILLIGRAM, QD
     Dates: start: 20200420, end: 20200427
  11. EVEROLIMUS [Suspect]
     Active Substance: EVEROLIMUS
     Dosage: 3 MILLIGRAM, QD
     Dates: start: 20200427, end: 20200520
  12. EVEROLIMUS [Suspect]
     Active Substance: EVEROLIMUS
     Dosage: 3 MILLIGRAM, QD
     Dates: start: 20200312, end: 20200319
  13. EVEROLIMUS [Suspect]
     Active Substance: EVEROLIMUS
     Dosage: 3.5 MILLIGRAM, QD
     Route: 065
     Dates: start: 20200319, end: 20200323
  14. EVEROLIMUS [Suspect]
     Active Substance: EVEROLIMUS
     Dosage: 3 MG, QD
     Route: 065
     Dates: start: 20200405, end: 20200414
  15. EVEROLIMUS [Suspect]
     Active Substance: EVEROLIMUS
     Dosage: 4 MILLIGRAM, QD
     Dates: start: 20200520
  16. EVEROLIMUS [Suspect]
     Active Substance: EVEROLIMUS
     Dosage: 2.5 MILLIGRAM, QD
     Dates: start: 20200405, end: 20200414
  17. EVEROLIMUS [Suspect]
     Active Substance: EVEROLIMUS
     Dosage: 2.5 MILLIGRAM
     Dates: start: 20200520
  18. BASILIXIMAB [Suspect]
     Active Substance: BASILIXIMAB
     Indication: Immunosuppression
     Dosage: 20 MILLIGRAM, QD
     Route: 065
     Dates: start: 20190826, end: 20190826
  19. BASILIXIMAB [Suspect]
     Active Substance: BASILIXIMAB
     Indication: Prophylaxis against transplant rejection
     Dosage: 20 MILLIGRAM, QD
     Route: 065
     Dates: start: 20190822, end: 20190822
  20. TACROLIMUS [Suspect]
     Active Substance: TACROLIMUS
     Indication: Renal transplant
     Dosage: 11 MG, QD
     Route: 065
     Dates: start: 20190829, end: 20190830
  21. ENVARSUS XR [Suspect]
     Active Substance: TACROLIMUS
     Indication: Renal transplant
     Dosage: 7 MG, QD
     Route: 048
     Dates: start: 20191104, end: 20191111
  22. ENVARSUS XR [Suspect]
     Active Substance: TACROLIMUS
     Indication: Prophylaxis against transplant rejection
     Dosage: 5.5 MILLIGRAM, QD
     Route: 048
     Dates: start: 20191111, end: 20191120
  23. ENVARSUS XR [Suspect]
     Active Substance: TACROLIMUS
     Dosage: 14 MILLIGRAM, QD
     Route: 065
     Dates: start: 20190831, end: 20190903
  24. ENVARSUS XR [Suspect]
     Active Substance: TACROLIMUS
     Dosage: 9 MILLIGRAM, QD
     Route: 048
     Dates: start: 20190827, end: 20190828
  25. ENVARSUS XR [Suspect]
     Active Substance: TACROLIMUS
     Dosage: 7 MILLIGRAM, QD
     Route: 048
     Dates: start: 20190823, end: 20190824
  26. ENVARSUS XR [Suspect]
     Active Substance: TACROLIMUS
     Dosage: 8 MILLIGRAM, QD
     Route: 048
     Dates: start: 20190823
  27. ENVARSUS XR [Suspect]
     Active Substance: TACROLIMUS
     Dosage: 6 MILLIGRAM, QD
     Route: 048
     Dates: start: 20191120, end: 20191212
  28. ENVARSUS XR [Suspect]
     Active Substance: TACROLIMUS
     Dosage: 7 MILLIGRAM, QD
     Route: 048
     Dates: start: 20191212, end: 20200305
  29. ENVARSUS XR [Suspect]
     Active Substance: TACROLIMUS
     Dosage: 9 MILLIGRAM, QD
     Route: 048
     Dates: start: 20190923, end: 20191004
  30. ENVARSUS XR [Suspect]
     Active Substance: TACROLIMUS
     Dosage: 8 MILLIGRAM, QD
     Route: 048
     Dates: start: 20191017, end: 20191104
  31. ENVARSUS XR [Suspect]
     Active Substance: TACROLIMUS
     Dosage: 12 MILLIGRAM, QD
     Route: 048
     Dates: start: 20190904, end: 20190923
  32. ENVARSUS XR [Suspect]
     Active Substance: TACROLIMUS
     Dosage: 8.75 MILLIGRAM, QD
     Route: 048
     Dates: start: 20191008, end: 20191017
  33. ENVARSUS XR [Suspect]
     Active Substance: TACROLIMUS
     Dosage: 7.5 MILLIGRAM, QD
     Route: 048
     Dates: start: 20190825, end: 20190826
  34. ENVARSUS XR [Suspect]
     Active Substance: TACROLIMUS
     Dosage: 8 MILLIGRAM, QD
     Route: 048
     Dates: start: 20191004, end: 20191008
  35. ENVARSUS XR [Suspect]
     Active Substance: TACROLIMUS
     Dosage: 11 MILLIGRAM, QD
     Route: 048
     Dates: start: 20190829, end: 20190830
  36. ENVARSUS XR [Suspect]
     Active Substance: TACROLIMUS
     Dosage: 2 MILLIGRAM, QD
     Route: 048
     Dates: start: 20200305, end: 20200312
  37. FOLIC ACID [Concomitant]
     Active Substance: FOLIC ACID
     Indication: Anaemia
     Dosage: UNK
     Route: 065
     Dates: start: 20190822
  38. DOXAZOSIN [Concomitant]
     Active Substance: DOXAZOSIN MESYLATE
     Indication: Hypertension
     Dosage: UNK
     Route: 065
     Dates: start: 20190827, end: 20190830
  39. DOXAZOSIN [Concomitant]
     Active Substance: DOXAZOSIN MESYLATE
     Dosage: UNK
     Dates: start: 20190824, end: 20190825
  40. DOXAZOSIN [Concomitant]
     Active Substance: DOXAZOSIN MESYLATE
     Dosage: UNK
     Route: 065
     Dates: start: 20191028, end: 20191212
  41. LABETALOL [Concomitant]
     Active Substance: LABETALOL\LABETALOL HYDROCHLORIDE
     Indication: Hypertension
     Dosage: UNK
     Route: 065
     Dates: start: 20190822, end: 20190824
  42. NYSTATIN [Concomitant]
     Active Substance: NYSTATIN
     Indication: Antifungal prophylaxis
     Dosage: UNK
     Route: 065
     Dates: start: 20190822
  43. NYSTATIN [Concomitant]
     Active Substance: NYSTATIN
     Indication: Acidosis
     Dosage: UNK
     Dates: start: 20190824
  44. NYSTATIN [Concomitant]
     Active Substance: NYSTATIN
     Indication: Prophylaxis
     Dosage: UNK
     Dates: start: 20190822
  45. FERROUS SULFATE [Concomitant]
     Active Substance: FERROUS SULFATE
     Indication: Anaemia
     Dosage: UNK
     Route: 065
     Dates: start: 20190824, end: 20190902
  46. VALGANCICLOVIR [Concomitant]
     Active Substance: VALGANCICLOVIR
     Indication: Infection prophylaxis
     Dosage: UNK
     Route: 065
     Dates: start: 20191028
  47. MAGNESIUM [Concomitant]
     Active Substance: MAGNESIUM
     Indication: Magnesium deficiency
     Dosage: UNK
     Route: 065
     Dates: start: 20190916
  48. SPIRONOLACTONE [Concomitant]
     Active Substance: SPIRONOLACTONE
     Indication: Diuretic therapy
     Dosage: UNK
     Route: 065
     Dates: start: 20191104, end: 20191120
  49. FOSFATOS SODICOS [Concomitant]
     Indication: Hypophosphataemia
     Dosage: UNK
     Route: 065
     Dates: start: 20190825
  50. CALCIFEDIOL [Concomitant]
     Active Substance: CALCIFEDIOL
     Indication: Vitamin D deficiency
     Dosage: UNK
     Route: 065
     Dates: start: 20190903, end: 20200827
  51. FUROSEMIDE [Concomitant]
     Active Substance: FUROSEMIDE
     Indication: Diuretic therapy
     Dosage: UNK
     Dates: start: 20191230
  52. SULFAMETHOXAZOLE\TRIMETHOPRIM [Concomitant]
     Active Substance: SULFAMETHOXAZOLE\TRIMETHOPRIM
     Indication: Antibiotic prophylaxis
     Dosage: UNK
     Route: 065
     Dates: start: 20190822
  53. LINAGLIPTIN [Concomitant]
     Active Substance: LINAGLIPTIN
     Indication: Diabetes mellitus
     Dosage: UNK
     Dates: start: 20191212, end: 20200427
  54. AMLODIPINE [Concomitant]
     Active Substance: AMLODIPINE BESYLATE
     Indication: Hypertension
     Dosage: UNK
     Route: 065
     Dates: start: 20190824, end: 20191212
  55. MEGESTROL ACETATE [Concomitant]
     Active Substance: MEGESTROL ACETATE
     Indication: Appetite disorder
     Dosage: UNK
     Route: 065
     Dates: start: 20190901, end: 20191104
  56. OMEPRAZOLE [Concomitant]
     Active Substance: OMEPRAZOLE
     Indication: Prophylaxis
     Dosage: UNK
     Dates: start: 20190822
  57. CALCIUM CARBONATE [Concomitant]
     Active Substance: CALCIUM CARBONATE
     Indication: Acidosis
     Dosage: UNK
     Dates: start: 20190824, end: 20191115

REACTIONS (2)
  - Kaposi^s sarcoma [Recovering/Resolving]
  - Tremor [Recovered/Resolved]

NARRATIVE: CASE EVENT DATE: 20191004
